FAERS Safety Report 10209451 (Version 2)
Quarter: 2014Q2

REPORT INFORMATION
  Report Type: Spontaneous
  Country: US (occurrence: US)
  Receive Date: 20140601
  Receipt Date: 20140626
  Transmission Date: 20141212
  Serious: No
  Sender: FDA-Public Use
  Company Number: US-009507513-1405USA012593

PATIENT
  Age: 55 Year
  Sex: Female
  Weight: 67.12 kg

DRUGS (2)
  1. DULERA [Suspect]
     Indication: ASTHMA
     Dosage: 4 PUFFS A DAY
     Route: 055
     Dates: start: 201401
  2. PANTOPRAZOLE [Concomitant]
     Dosage: 1 PILL A DAY
     Route: 048

REACTIONS (2)
  - Tongue ulceration [Unknown]
  - Swollen tongue [Unknown]
